FAERS Safety Report 8225614-2 (Version None)
Quarter: 2012Q1

REPORT INFORMATION
  Report Type: 
  Country: None (occurrence: None)
  Receive Date: 20120321
  Receipt Date: 20120312
  Transmission Date: 20120608
  Serious: Yes (Life-Threatening)
  Sender: FDA-Public Use
  Company Number: CN-BRISTOL-MYERS SQUIBB COMPANY-16408783

PATIENT
  Age: 46 Year
  Sex: Female
  Weight: 62 kg

DRUGS (3)
  1. CISPLATIN [Suspect]
     Indication: NON-SMALL CELL LUNG CANCER
     Dosage: 131MGD1:17JUL10-07AUG10, 44MG,D1-3:08SEP10-22SEP10-ONG.
     Route: 041
     Dates: start: 20100717
  2. CETUXIMAB [Suspect]
     Indication: NON-SMALL CELL LUNG CANCER
     Dosage: CETUXIMAB INTRAVENOUS INFUSION 435MG:17JUL10-22OCT10-ONG
     Route: 041
     Dates: start: 20100710
  3. VINORELBINE [Suspect]
     Indication: NON-SMALL CELL LUNG CANCER
     Dosage: 44MG,D1 D8:17JUL10-13AUG10(27 DAYS) 22MG,D1 D8:08SEP10--22OCT10 ONG.
     Route: 042
     Dates: start: 20100717

REACTIONS (2)
  - LEUKOPENIA [None]
  - NEUTROPENIA [None]
